FAERS Safety Report 7677540-5 (Version None)
Quarter: 2011Q3

REPORT INFORMATION
  Report Type: 
  Country: None (occurrence: None)
  Receive Date: 20110811
  Receipt Date: 20110804
  Transmission Date: 20111222
  Serious: Yes (Other)
  Sender: FDA-Public Use
  Company Number: GB-NOVOPROD-333113

PATIENT

DRUGS (2)
  1. LEVEMIR [Suspect]
     Indication: DIABETES MELLITUS
     Dosage: 14 IU, BID
     Route: 058
     Dates: start: 20110707, end: 20110715
  2. NOVORAPID [Concomitant]
     Indication: DIABETES MELLITUS
     Dosage: UNK
     Route: 058
     Dates: start: 20010101

REACTIONS (6)
  - HEADACHE [None]
  - PRURITUS [None]
  - DYSPNOEA [None]
  - ERYTHEMA [None]
  - LOCAL REACTION [None]
  - LOCAL SWELLING [None]
